FAERS Safety Report 12917015 (Version 1)
Quarter: 2016Q4

REPORT INFORMATION
  Report Type: Spontaneous
  Country: US (occurrence: US)
  Receive Date: 20161107
  Receipt Date: 20161107
  Transmission Date: 20170207
  Serious: Yes (Other)
  Sender: FDA-Public Use
  Company Number: US-BAYER-2016-212144

PATIENT
  Sex: Female

DRUGS (17)
  1. BENZTROPINE [Concomitant]
     Active Substance: BENZTROPINE
     Dosage: 1 MG, QD
  2. CLONAZEPAM. [Concomitant]
     Active Substance: CLONAZEPAM
     Dosage: 1 DF, BID
     Route: 048
  3. TOPAMAX [Concomitant]
     Active Substance: TOPIRAMATE
     Dosage: 2 DF, QD
  4. IPRATROPIUM [Concomitant]
     Active Substance: IPRATROPIUM
     Dosage: 1 DF (PUFF), EVERY 6 HOURS AS NEEDED
     Route: 045
  5. LORATADINE. [Concomitant]
     Active Substance: LORATADINE
     Dosage: 10 MG, QD
     Route: 048
  6. FLOVENT HFA [Concomitant]
     Active Substance: FLUTICASONE PROPIONATE
     Dosage: 2 DF (2 PUFFS), QD
     Route: 045
  7. ABILIFY [Concomitant]
     Active Substance: ARIPIPRAZOLE
  8. FLONASE [Concomitant]
     Active Substance: FLUTICASONE PROPIONATE
     Dosage: 1 DF, QD ( 1 SPRAY IN EACH NOSTRIL)
     Route: 045
  9. REMERON [Concomitant]
     Active Substance: MIRTAZAPINE
     Dosage: UNK, HS
  10. RIBAVIRIN. [Concomitant]
     Active Substance: RIBAVIRIN
     Dosage: 3 DF, BID
  11. ZOLOFT [Concomitant]
     Active Substance: SERTRALINE HYDROCHLORIDE
  12. HYDROCODONE [Concomitant]
     Active Substance: HYDROCODONE
     Dosage: 1 DF, EVERY 6 HOURS AS NEEDED
     Route: 048
  13. ALEVE [Suspect]
     Active Substance: NAPROXEN SODIUM
  14. LYRICA [Concomitant]
     Active Substance: PREGABALIN
  15. INFLUENZA VACCINE [Concomitant]
     Active Substance: INFLUENZA VIRUS VACCINE
     Dosage: 0.5 ML, UNK
     Route: 030
  16. PANTOPRAZOLE [Concomitant]
     Active Substance: PANTOPRAZOLE SODIUM
     Dosage: 1 DF, QD
     Route: 048
  17. LYRICA [Concomitant]
     Active Substance: PREGABALIN
     Dosage: 1 DF, TID
     Route: 048

REACTIONS (4)
  - Drug hypersensitivity [None]
  - Vomiting [None]
  - Nausea [None]
  - Anaphylactic reaction [None]
